FAERS Safety Report 7986126-4 (Version None)
Quarter: 2011Q4

REPORT INFORMATION
  Report Type: 
  Country: None (occurrence: None)
  Receive Date: 20111216
  Receipt Date: 20111206
  Transmission Date: 20120403
  Serious: Yes (Other)
  Sender: FDA-Public Use
  Company Number: US-BAYER-201029615NA

PATIENT
  Age: 20 Year
  Sex: Female
  Weight: 54.422 kg

DRUGS (17)
  1. MULTI-VITAMINS [Concomitant]
     Dosage: UNK UNK, QD
     Route: 048
  2. ORTHO TRI-CYCLEN [Concomitant]
     Dosage: UNK UNK, QD
     Route: 048
  3. INDOMETHACIN [Concomitant]
     Indication: SACROILIITIS
     Dosage: 25 MG, 2-3 TIMES/DAY
  4. NAPROXEN [Concomitant]
  5. ASPIRIN [Concomitant]
     Dosage: 81 MG, QD
  6. ACETAMINOPHEN [Concomitant]
     Indication: ARTHRALGIA
     Dosage: 650 MG, QID
  7. VITAMIN C [Concomitant]
     Dosage: 1000 MG, BID
  8. POTASSIUM CHLORIDE [Concomitant]
  9. ZITHROMAX [Concomitant]
     Indication: PELVIC PAIN
  10. TORADOL [Concomitant]
     Indication: PAIN
     Dosage: 1 TABLET 4 TIMES DAILY AS NEEDED
  11. YAZ [Suspect]
     Indication: ORAL CONTRACEPTION
     Dosage: UNK UNK, QD
     Dates: start: 20061101, end: 20071101
  12. ANAPROX DS [Concomitant]
     Indication: MUSCLE SPASMS
     Dosage: 550MG 1 EVERY 12 HOURS
     Route: 048
  13. POTASSIUM CHLORIDE [Concomitant]
     Dosage: 99 MG, QD
  14. DARVOCET-N 50 [Concomitant]
     Indication: PAIN
     Dosage: 100-650MG 1EVERY 4 HOURS AS NEEDED
  15. ENBREL [Concomitant]
  16. ATIVAN [Concomitant]
  17. LORTAB [Concomitant]
     Indication: PAIN
     Dosage: /2 TABLET BY MOUTH 4 TIMES DAILY AS NEEDED

REACTIONS (4)
  - CEREBROVASCULAR ACCIDENT [None]
  - CHOLECYSTITIS CHRONIC [None]
  - INJURY [None]
  - GALLBLADDER DISORDER [None]
